FAERS Safety Report 5248526-5 (Version None)
Quarter: 2007Q1

REPORT INFORMATION
  Report Type: 
  Country: None (occurrence: None)
  Receive Date: 20070227
  Receipt Date: 20070215
  Transmission Date: 20070707
  Serious: Yes (Other)
  Sender: FDA-Public Use
  Company Number: US-PFIZER INC-2007013021

PATIENT
  Sex: Female
  Weight: 90.7 kg

DRUGS (12)
  1. CHANTIX [Suspect]
     Indication: EX-SMOKER
  2. MORPHINE [Concomitant]
  3. KLONOPIN [Concomitant]
  4. LISINOPRIL W/HYDROCHLOROTHIAZIDE [Concomitant]
  5. CYMBALTA [Concomitant]
  6. INSULIN [Concomitant]
  7. SEROQUEL [Concomitant]
  8. POTASSIUM ACETATE [Concomitant]
  9. NEXIUM [Concomitant]
  10. HYDROCODONE [Concomitant]
  11. TOPAMAX [Concomitant]
  12. METFORMIN HCL [Concomitant]

REACTIONS (2)
  - BLOOD GLUCOSE INCREASED [None]
  - PANIC REACTION [None]
